FAERS Safety Report 20061398 (Version 1)
Quarter: 2021Q4

REPORT INFORMATION
  Report Type: Spontaneous
  Country: US (occurrence: US)
  Receive Date: 20211112
  Receipt Date: 20211112
  Transmission Date: 20220303
  Serious: Yes (Other)
  Sender: FDA-Public Use
  Company Number: US-SUN PHARMACEUTICAL INDUSTRIES LTD-2021R1-317185

PATIENT
  Age: 52 Year
  Sex: Female

DRUGS (18)
  1. ALPRAZOLAM [Suspect]
     Active Substance: ALPRAZOLAM
     Indication: Morvan syndrome
     Dosage: UNK
     Route: 065
  2. BACLOFEN [Suspect]
     Active Substance: BACLOFEN
     Indication: Morvan syndrome
     Dosage: UNK
     Route: 065
  3. CLONAZEPAM [Suspect]
     Active Substance: CLONAZEPAM
     Indication: Morvan syndrome
     Dosage: UNK
     Route: 065
  4. GABAPENTIN [Suspect]
     Active Substance: GABAPENTIN
     Indication: Morvan syndrome
     Dosage: UNK
     Route: 065
  5. OXCARBAZEPINE [Suspect]
     Active Substance: OXCARBAZEPINE
     Indication: Morvan syndrome
     Dosage: UNK
     Route: 065
  6. PREDNISONE [Suspect]
     Active Substance: PREDNISONE
     Indication: Morvan syndrome
     Dosage: UNK
     Route: 065
  7. TIZANIDINE [Suspect]
     Active Substance: TIZANIDINE
     Indication: Morvan syndrome
     Dosage: UNK
     Route: 065
  8. CARBAMAZEPINE [Suspect]
     Active Substance: CARBAMAZEPINE
     Indication: Morvan syndrome
     Dosage: UNK
     Route: 065
  9. CARBIDOPA\LEVODOPA [Suspect]
     Active Substance: CARBIDOPA\LEVODOPA
     Indication: Morvan syndrome
     Dosage: UNK
     Route: 065
  10. DIAZEPAM [Suspect]
     Active Substance: DIAZEPAM
     Indication: Morvan syndrome
     Dosage: UNK
     Route: 065
  11. AZATHIOPRINE [Suspect]
     Active Substance: AZATHIOPRINE
     Indication: Morvan syndrome
     Dosage: UNK
     Route: 065
  12. BENZTROPINE [Suspect]
     Active Substance: BENZTROPINE
     Indication: Morvan syndrome
     Dosage: UNK
     Route: 065
  13. BROMOCRIPTINE [Suspect]
     Active Substance: BROMOCRIPTINE
     Indication: Morvan syndrome
     Dosage: UNK
     Route: 065
  14. DANTROLENE [Suspect]
     Active Substance: DANTROLENE
     Indication: Morvan syndrome
     Dosage: UNK
     Route: 065
  15. ONABOTULINUMTOXINA [Suspect]
     Active Substance: ONABOTULINUMTOXINA
     Indication: Morvan syndrome
     Dosage: UNK
     Route: 065
  16. KETAMINE [Suspect]
     Active Substance: KETAMINE
     Indication: Morvan syndrome
     Dosage: UNK
     Route: 065
  17. TRIHEXYPHENIDYL [Suspect]
     Active Substance: TRIHEXYPHENIDYL
     Indication: Morvan syndrome
     Dosage: UNK
     Route: 065
  18. ZICONOTIDE [Suspect]
     Active Substance: ZICONOTIDE
     Indication: Morvan syndrome
     Dosage: UNK
     Route: 037

REACTIONS (1)
  - Therapy non-responder [Unknown]
